FAERS Safety Report 4962527-3 (Version None)
Quarter: 2006Q1

REPORT INFORMATION
  Report Type: 
  Country: None (occurrence: None)
  Receive Date: 20060201
  Receipt Date: 20051110
  Transmission Date: 20060701
  Serious: No
  Sender: FDA-Public Use
  Company Number: 2005PV004394

PATIENT
  Age: 80 Year
  Sex: Female
  Weight: 87.0906 kg

DRUGS (3)
  1. BYETTA [Suspect]
     Indication: DIABETES MELLITUS NON-INSULIN-DEPENDENT
     Dosage: 10 + 5 MCG; BID; SC
     Route: 058
     Dates: start: 20051027, end: 20051126
  2. BYETTA [Suspect]
     Indication: DIABETES MELLITUS NON-INSULIN-DEPENDENT
     Dosage: 10 + 5 MCG; BID; SC
     Route: 058
     Dates: start: 20051126
  3. BYETTA [Suspect]

REACTIONS (3)
  - FEELING JITTERY [None]
  - NAUSEA [None]
  - WEIGHT DECREASED [None]
